FAERS Safety Report 5209606-3 (Version None)
Quarter: 2006Q4

REPORT INFORMATION
  Report Type: 
  Country: None (occurrence: None)
  Receive Date: 20061122
  Receipt Date: 20051215
  Transmission Date: 20070319
  Serious: Yes (Other)
  Sender: FDA-Public Use
  Company Number: 2005147388

PATIENT
  Age: 45 Year
  Sex: Female

DRUGS (15)
  1. LIPITOR [Suspect]
     Indication: BLOOD CHOLESTEROL INCREASED
     Dosage: 20 MG (20 MG, 1 IN 1 D), ORAL
     Route: 048
     Dates: start: 20030505, end: 20051019
  2. LIPITOR [Suspect]
     Indication: HYPERLIPIDAEMIA
     Dosage: 20 MG (20 MG, 1 IN 1 D), ORAL
     Route: 048
     Dates: start: 20030505, end: 20051019
  3. FLEXERIL [Concomitant]
  4. NASONEX [Concomitant]
  5. COREG [Concomitant]
  6. ZOLOFT [Concomitant]
  7. IMITREX [Concomitant]
  8. IRON (IRON) [Concomitant]
  9. TOPAMAX [Concomitant]
  10. ELAVIL [Concomitant]
  11. CLARITIN [Concomitant]
  12. ALL OTHER THERAPEUTIC PRODUCTS (ALL OTHER THERAPEUTIC PRODUCTS) [Concomitant]
  13. EVENING PRIMROSE OIL (EVENING PRIMROSE OIL) [Concomitant]
  14. MULTIVITAMIN [Concomitant]
  15. ALL OTHER THERAPEUTIC PRODUCTS (ALL OTHER THERAPEUTIC PRODUCTS) [Concomitant]

REACTIONS (17)
  - ARTHRALGIA [None]
  - DEPRESSION [None]
  - EAR CONGESTION [None]
  - EAR PAIN [None]
  - FLUID RETENTION [None]
  - HYPERSENSITIVITY [None]
  - HYPERSOMNIA [None]
  - INFLUENZA LIKE ILLNESS [None]
  - INSOMNIA [None]
  - INTERVERTEBRAL DISC PROTRUSION [None]
  - MIGRAINE [None]
  - MUSCLE SPASMS [None]
  - MUSCULAR WEAKNESS [None]
  - NASAL CONGESTION [None]
  - SINUSITIS [None]
  - URINARY TRACT INFECTION [None]
  - WEIGHT DECREASED [None]
